FAERS Safety Report 20634771 (Version 1)
Quarter: 2022Q1

REPORT INFORMATION
  Report Type: Spontaneous
  Country: JP (occurrence: JP)
  Receive Date: 20220325
  Receipt Date: 20220325
  Transmission Date: 20220423
  Serious: Yes (Other)
  Sender: FDA-Public Use
  Company Number: JP-SA-2022SA095420

PATIENT
  Sex: Male

DRUGS (25)
  1. JEVTANA [Suspect]
     Active Substance: CABAZITAXEL
     Indication: Hormone-refractory prostate cancer
     Dosage: 30 MG, 1X
     Route: 041
     Dates: start: 20171109
  2. JEVTANA [Suspect]
     Active Substance: CABAZITAXEL
     Dosage: 30 MG, 1X
     Route: 041
     Dates: start: 20171212
  3. JEVTANA [Suspect]
     Active Substance: CABAZITAXEL
     Dosage: 30 MG, 1X
     Route: 041
     Dates: start: 20180117
  4. JEVTANA [Suspect]
     Active Substance: CABAZITAXEL
     Dosage: 30 MG, 1X
     Route: 041
     Dates: start: 20180214
  5. JEVTANA [Suspect]
     Active Substance: CABAZITAXEL
     Dosage: 30 MG, 1X
     Route: 041
     Dates: start: 20180314
  6. JEVTANA [Suspect]
     Active Substance: CABAZITAXEL
     Dosage: 30 MG, 1X
     Route: 041
     Dates: start: 20180516
  7. JEVTANA [Suspect]
     Active Substance: CABAZITAXEL
     Dosage: 32 MG, 1X
     Route: 041
     Dates: start: 20180613
  8. JEVTANA [Suspect]
     Active Substance: CABAZITAXEL
     Dosage: 30 MG, 1X
     Route: 041
     Dates: start: 20180704
  9. JEVTANA [Suspect]
     Active Substance: CABAZITAXEL
     Dosage: 30 MG, 1X
     Route: 041
     Dates: start: 20180725
  10. JEVTANA [Suspect]
     Active Substance: CABAZITAXEL
     Dosage: 30 MG, 1X
     Route: 041
     Dates: start: 20180815
  11. JEVTANA [Suspect]
     Active Substance: CABAZITAXEL
     Dosage: 30 MG, 1X
     Route: 041
     Dates: start: 20180905
  12. JEVTANA [Suspect]
     Active Substance: CABAZITAXEL
     Dosage: 30 MG, 1X
     Route: 041
     Dates: start: 20180926
  13. PEGFILGRASTIM [Concomitant]
     Active Substance: PEGFILGRASTIM
     Indication: Product used for unknown indication
     Dosage: UNK
     Route: 065
     Dates: start: 20171110, end: 20180927
  14. DECADRON (DEXAMETHASONE SODIUM PHOSPHATE) [Concomitant]
     Active Substance: DEXAMETHASONE SODIUM PHOSPHATE
     Indication: Product used for unknown indication
     Dosage: UNK
     Route: 065
     Dates: start: 20160722, end: 20180926
  15. GASTER [Concomitant]
     Active Substance: FAMOTIDINE
     Indication: Product used for unknown indication
     Dosage: UNK
     Route: 065
     Dates: start: 20171109, end: 20181009
  16. POLARAMINE [Concomitant]
     Active Substance: DEXCHLORPHENIRAMINE MALEATE
     Indication: Product used for unknown indication
     Dosage: UNK
     Route: 065
     Dates: start: 20171109, end: 20180926
  17. SODIUM CHLORIDE [Concomitant]
     Active Substance: SODIUM CHLORIDE
     Indication: Product used for unknown indication
     Dosage: UNK
     Route: 065
     Dates: start: 20160805, end: 20190403
  18. PREDONINE [Concomitant]
     Active Substance: PREDNISOLONE
     Indication: Product used for unknown indication
     Dosage: UNK
     Route: 048
     Dates: start: 20161021, end: 20190320
  19. POTASSIUM ASPARTATE [Concomitant]
     Active Substance: POTASSIUM ASPARTATE
     Indication: Product used for unknown indication
     Dosage: UNK
     Route: 048
     Dates: start: 20171229, end: 20190320
  20. METHYLCOBALAMIN [Concomitant]
     Active Substance: METHYLCOBALAMIN
     Indication: Product used for unknown indication
     Dosage: UNK
     Route: 048
     Dates: start: 20180120, end: 20190320
  21. ELDECALCITOL [Concomitant]
     Active Substance: ELDECALCITOL
     Indication: Product used for unknown indication
     Dosage: UNK
     Route: 048
     Dates: start: 20180124, end: 20190320
  22. MIYA-BM [Concomitant]
     Active Substance: CLOSTRIDIUM BUTYRICUM SPORES STRAIN M-55
     Indication: Product used for unknown indication
     Dosage: UNK
     Route: 048
     Dates: start: 20171116, end: 20171120
  23. LENOGRASTIM [Concomitant]
     Active Substance: LENOGRASTIM
     Indication: Product used for unknown indication
     Dosage: UNK
     Route: 065
     Dates: start: 20160812, end: 20181006
  24. CALCIUM L-ASPARTATE [Concomitant]
     Indication: Product used for unknown indication
     Dosage: UNK
     Route: 048
     Dates: start: 20141030, end: 20190320
  25. CALCIUM CARBONATE\CHOLECALCIFEROL\MAGNESIUM CARBONATE [Concomitant]
     Active Substance: CALCIUM CARBONATE\CHOLECALCIFEROL\MAGNESIUM CARBONATE
     Indication: Product used for unknown indication
     Dosage: UNK
     Route: 048
     Dates: start: 20171124, end: 20190209

REACTIONS (30)
  - Metastases to lung [Unknown]
  - Metastases to lymph nodes [Unknown]
  - Hydronephrosis [Unknown]
  - Haematochezia [Unknown]
  - Hypokalaemia [Unknown]
  - Leukopenia [Unknown]
  - Neuropathy peripheral [Unknown]
  - Febrile neutropenia [Unknown]
  - Sepsis [Unknown]
  - Pneumonia [Unknown]
  - Hypophagia [Unknown]
  - Pharyngitis [Unknown]
  - Faeces soft [Unknown]
  - Nasopharyngitis [Unknown]
  - Bronchitis chronic [Unknown]
  - Sputum abnormal [Unknown]
  - Nasal congestion [Unknown]
  - Hyperlipidaemia [Unknown]
  - Rhinorrhoea [Unknown]
  - Gastritis [Unknown]
  - Hypoaesthesia [Unknown]
  - Vomiting [Unknown]
  - Colitis [Unknown]
  - Nausea [Unknown]
  - Diarrhoea [Recovered/Resolved]
  - Abdominal discomfort [Unknown]
  - Muscle spasms [Unknown]
  - Myalgia [Recovering/Resolving]
  - Decreased appetite [Unknown]
  - Constipation [Unknown]

NARRATIVE: CASE EVENT DATE: 20171101
